FAERS Safety Report 12395748 (Version 1)
Quarter: 2016Q2

REPORT INFORMATION
  Report Type: Spontaneous
  Country: US (occurrence: US)
  Receive Date: 20160523
  Receipt Date: 20160523
  Transmission Date: 20160815
  Serious: No
  Sender: FDA-Public Use
  Company Number: US-BANPHARM-20164575

PATIENT
  Sex: Female

DRUGS (1)
  1. IBUPROFEN CAPSULES 200 MG [Suspect]
     Active Substance: IBUPROFEN
     Indication: POST-TRAUMATIC NECK SYNDROME
     Dosage: 1 DF, ONCE,
     Route: 048
     Dates: start: 20151216, end: 20151216

REACTIONS (8)
  - No reaction on previous exposure to drug [None]
  - Oropharyngeal pain [Recovered/Resolved]
  - Hypersensitivity [Recovered/Resolved]
  - Swollen tongue [Recovered/Resolved]
  - Dry throat [Recovered/Resolved]
  - Dry mouth [Recovered/Resolved]
  - Therapy change [None]
  - Dysgeusia [Recovered/Resolved]
